FAERS Safety Report 11088043 (Version 2)
Quarter: 2015Q4

REPORT INFORMATION
  Report Type: Report from Study
  Country: FR (occurrence: FR)
  Receive Date: 20150504
  Receipt Date: 20151111
  Transmission Date: 20160304
  Serious: Yes (Death, Hospitalization)
  Sender: FDA-Public Use
  Company Number: PHHY2013FR083225

PATIENT
  Age: 63 Year
  Sex: Female
  Weight: 62 kg

DRUGS (15)
  1. MYCOPHENOLIC ACID. [Suspect]
     Active Substance: MYCOPHENOLIC ACID
     Indication: RENAL TRANSPLANT
     Dosage: 360 MG, BID
     Route: 048
     Dates: start: 20110323, end: 201304
  2. MYCOPHENOLIC ACID. [Suspect]
     Active Substance: MYCOPHENOLIC ACID
     Indication: IMMUNOSUPPRESSION
  3. CERTICAN [Suspect]
     Active Substance: EVEROLIMUS
     Indication: IMMUNOSUPPRESSION
     Dosage: UNK
     Route: 048
     Dates: start: 20120313
  4. KARDEGIC [Concomitant]
     Active Substance: ASPIRIN LYSINE
     Indication: THROMBOSIS PROPHYLAXIS
     Dosage: 75 MG, QD
     Route: 065
     Dates: start: 20111018
  5. LASILIX [Concomitant]
     Active Substance: FUROSEMIDE
     Indication: DIURETIC THERAPY
     Dosage: 120 MG, QD
     Route: 065
     Dates: start: 20111008
  6. CRESTOR [Concomitant]
     Active Substance: ROSUVASTATIN CALCIUM
     Indication: HYPERCHOLESTEROLAEMIA
     Dosage: 10 MG, QD
     Route: 065
     Dates: start: 20111018
  7. LEVOTHYROX [Concomitant]
     Active Substance: LEVOTHYROXINE
     Indication: HYPOTHYROIDISM
     Dosage: 100 UG, QD
     Route: 065
     Dates: start: 20110415
  8. NEORAL [Suspect]
     Active Substance: CYCLOSPORINE
     Indication: RENAL TRANSPLANT
     Dosage: UNK
     Route: 065
     Dates: start: 20110622, end: 20110725
  9. SOLUPRED [Concomitant]
     Active Substance: PREDNISOLONE
     Indication: PRODUCT USED FOR UNKNOWN INDICATION
     Dosage: UNK
     Route: 065
     Dates: start: 20110903
  10. KAYEXALATE [Concomitant]
     Active Substance: SODIUM POLYSTYRENE SULFONATE
     Indication: HYPERKALAEMIA
     Dosage: 1 DOSING SPOON QD
     Route: 065
     Dates: start: 20110720
  11. EUPRESSYL [Concomitant]
     Active Substance: URAPIDIL
     Indication: HYPERTENSION
     Dosage: 120 MG, QD
     Route: 065
     Dates: start: 20110720
  12. NEORAL [Suspect]
     Active Substance: CYCLOSPORINE
     Indication: IMMUNOSUPPRESSION
  13. CERTICAN [Suspect]
     Active Substance: EVEROLIMUS
     Indication: RENAL TRANSPLANT
     Dosage: UNK
     Route: 048
     Dates: start: 20111201, end: 20120312
  14. ADVAGRAF [Concomitant]
     Active Substance: TACROLIMUS
     Indication: PRODUCT USED FOR UNKNOWN INDICATION
     Route: 065
     Dates: start: 20130328
  15. SOLUPRED [Concomitant]
     Active Substance: PREDNISOLONE
     Dosage: UNK UKN, UNK
     Dates: start: 20120313

REACTIONS (7)
  - Death [Fatal]
  - Renal impairment [Recovered/Resolved]
  - Diarrhoea [Recovered/Resolved]
  - Cardiac failure [Recovered/Resolved]
  - Renal failure [Recovered/Resolved]
  - Cardiac failure [Recovered/Resolved]
  - Pyelonephritis [Recovered/Resolved]

NARRATIVE: CASE EVENT DATE: 20130311
